FAERS Safety Report 20198509 (Version 1)
Quarter: 2021Q4

REPORT INFORMATION
  Report Type: Spontaneous
  Country: US (occurrence: US)
  Receive Date: 20211217
  Receipt Date: 20211217
  Transmission Date: 20220304
  Serious: No
  Sender: FDA-Public Use
  Company Number: US-drreddys-SPO/USA/21/0144634

PATIENT
  Age: 52 Year
  Sex: Male
  Weight: 74.25 kg

DRUGS (1)
  1. HABITROL [Suspect]
     Active Substance: NICOTINE
     Indication: Tobacco user
     Route: 062
     Dates: start: 20211201, end: 20211201

REACTIONS (3)
  - Nicotine dependence [Unknown]
  - Underdose [Unknown]
  - Product adhesion issue [Unknown]
